FAERS Safety Report 7607300-2 (Version None)
Quarter: 2011Q3

REPORT INFORMATION
  Report Type: 
  Country: None (occurrence: None)
  Receive Date: 20110713
  Receipt Date: 20110702
  Transmission Date: 20111222
  Serious: Yes (Other)
  Sender: FDA-Public Use
  Company Number: PHHY2011NO59356

PATIENT
  Sex: Female

DRUGS (2)
  1. TEGRETOL [Suspect]
     Indication: WITHDRAWAL SYNDROME
     Dosage: 200 MG, TID
  2. TEGRETOL [Suspect]
     Dosage: 0.5 TABLET, TID

REACTIONS (5)
  - HYPERTENSION [None]
  - CHOKING SENSATION [None]
  - CHEST DISCOMFORT [None]
  - SENSATION OF FOREIGN BODY [None]
  - HEART RATE INCREASED [None]
